FAERS Safety Report 5004036-1 (Version None)
Quarter: 2006Q2

REPORT INFORMATION
  Report Type: 
  Country: None (occurrence: None)
  Receive Date: 20060517
  Receipt Date: 20060505
  Transmission Date: 20061013
  Serious: Yes (Hospitalization)
  Sender: FDA-Public Use
  Company Number: PHBS2006ES07000

PATIENT
  Age: 33 Year
  Sex: Female

DRUGS (3)
  1. INSULIN [Concomitant]
     Indication: DIABETES MELLITUS
     Dosage: UNK, TID
  2. OCTREOTIDE ACETATE [Suspect]
     Indication: ACROMEGALY
     Route: 065
     Dates: start: 19921001
  3. OCTREOTIDE ACETATE [Suspect]
     Route: 065
     Dates: start: 20040901

REACTIONS (6)
  - EMOTIONAL DISORDER [None]
  - ENERGY INCREASED [None]
  - MANIA [None]
  - MOOD ALTERED [None]
  - PSYCHOTIC DISORDER [None]
  - THINKING ABNORMAL [None]
